FAERS Safety Report 24830042 (Version 1)
Quarter: 2025Q1

REPORT INFORMATION
  Report Type: Spontaneous
  Country: US (occurrence: US)
  Receive Date: 20250110
  Receipt Date: 20250110
  Transmission Date: 20250409
  Serious: Yes (Hospitalization, Other)
  Sender: Haleon PLC
  Company Number: US-HALEON-2221034

PATIENT
  Age: 31 Year
  Sex: Female

DRUGS (14)
  1. ACETAMINOPHEN [Suspect]
     Active Substance: ACETAMINOPHEN
     Indication: Product used for unknown indication
  2. ACYCLOVIR [Suspect]
     Active Substance: ACYCLOVIR
     Indication: Product used for unknown indication
  3. ADVIL PM (DIPHENHYDRAMINE CITRATE\IBUPROFEN) [Suspect]
     Active Substance: DIPHENHYDRAMINE CITRATE\IBUPROFEN
     Indication: Product used for unknown indication
  4. ALEMTUZUMAB [Suspect]
     Active Substance: ALEMTUZUMAB
     Indication: Product used for unknown indication
  5. BENADRYL [Suspect]
     Active Substance: DIPHENHYDRAMINE HYDROCHLORIDE
     Indication: Product used for unknown indication
  6. CLONAZEPAM [Suspect]
     Active Substance: CLONAZEPAM
     Indication: Product used for unknown indication
  7. GABAPENTIN [Suspect]
     Active Substance: GABAPENTIN
     Indication: Product used for unknown indication
  8. GRAVOL [Suspect]
     Active Substance: DIMENHYDRINATE
     Indication: Product used for unknown indication
  9. CANNABIS SATIVA SUBSP. INDICA TOP [Suspect]
     Active Substance: CANNABIS SATIVA SUBSP. INDICA TOP
     Indication: Product used for unknown indication
  10. METHYLPREDNISOLONE [Suspect]
     Active Substance: METHYLPREDNISOLONE
     Indication: Product used for unknown indication
  11. RANITIDINE [Suspect]
     Active Substance: RANITIDINE
     Indication: Product used for unknown indication
  12. CETIRIZINE HYDROCHLORIDE [Suspect]
     Active Substance: CETIRIZINE HYDROCHLORIDE
     Indication: Product used for unknown indication
  13. SERTRALINE [Suspect]
     Active Substance: SERTRALINE HYDROCHLORIDE
     Indication: Product used for unknown indication
  14. ZOPICLONE [Suspect]
     Active Substance: ZOPICLONE
     Indication: Product used for unknown indication

REACTIONS (21)
  - Blindness [Unknown]
  - Hospitalisation [Unknown]
  - Headache [Unknown]
  - Constipation [Unknown]
  - Dyspnoea [Unknown]
  - Flushing [Unknown]
  - Feeling abnormal [Unknown]
  - Diplopia [Unknown]
  - Chills [Unknown]
  - Diarrhoea [Unknown]
  - Feeling hot [Unknown]
  - Condition aggravated [Unknown]
  - Crying [Unknown]
  - Feeling cold [Unknown]
  - Drug interaction [Unknown]
  - Emotional disorder [Unknown]
  - Flashback [Unknown]
  - Erythema [Unknown]
  - Dizziness [Unknown]
  - Fatigue [Unknown]
  - Cough [Unknown]
